FAERS Safety Report 18516165 (Version 3)
Quarter: 2021Q2

REPORT INFORMATION
  Report Type: Report from Study
  Country: US (occurrence: US)
  Receive Date: 20201118
  Receipt Date: 20210623
  Transmission Date: 20210717
  Serious: Yes (Hospitalization)
  Sender: FDA-Public Use
  Company Number: NVSC2020US300110

PATIENT
  Age: 11 Month
  Sex: Male
  Weight: 10 kg

DRUGS (1)
  1. ZOLGENSMA [Suspect]
     Active Substance: ONASEMNOGENE ABEPARVOVEC-XIOI
     Indication: SPINAL MUSCULAR ATROPHY
     Dosage: 5.5 ML, ONCE/SINGLE
     Route: 042
     Dates: start: 20201104, end: 20201104

REACTIONS (7)
  - Restlessness [Unknown]
  - Pyrexia [Recovering/Resolving]
  - Vomiting [Not Recovered/Not Resolved]
  - Muscular weakness [Unknown]
  - Dyspnoea [Recovering/Resolving]
  - Laboratory test abnormal [Unknown]
  - Crying [Unknown]

NARRATIVE: CASE EVENT DATE: 20201104
